FAERS Safety Report 9171338 (Version 10)
Quarter: 2015Q2

REPORT INFORMATION
  Report Type: Report from Study
  Country: DE (occurrence: DE)
  Receive Date: 20130319
  Receipt Date: 20150511
  Transmission Date: 20150821
  Serious: Yes (Life-Threatening, Hospitalization)
  Sender: FDA-Public Use
  Company Number: DE-ROCHE-1170888

PATIENT
  Age: 58 Year
  Sex: Female
  Weight: 91 kg

DRUGS (28)
  1. PERTUZUMAB [Suspect]
     Active Substance: PERTUZUMAB
     Route: 042
     Dates: start: 20130227
  2. VINORELBINE [Suspect]
     Active Substance: VINORELBINE\VINORELBINE TARTRATE
     Route: 042
     Dates: start: 20130227
  3. MAALOXAN [Concomitant]
     Active Substance: ALUMINUM HYDROXIDE\MAGNESIUM HYDROXIDE
     Dosage: PRN
     Route: 065
     Dates: start: 20121206
  4. TARGIN [Concomitant]
     Active Substance: NALOXONE HYDROCHLORIDE\OXYCODONE HYDROCHLORIDE
     Route: 065
     Dates: start: 20121217
  5. KEVATRIL [Concomitant]
     Active Substance: GRANISETRON HYDROCHLORIDE
     Route: 065
     Dates: start: 20130122, end: 20130422
  6. VINORELBINE [Suspect]
     Active Substance: VINORELBINE\VINORELBINE TARTRATE
     Dosage: LAST DOSE PRIOR TO EVENT: 16/JAN/2013
     Route: 042
     Dates: start: 20130109
  7. MCP AL [Concomitant]
     Dosage: 20 DROPS PRN
     Route: 065
     Dates: start: 20121113
  8. ACICLOVIR [Concomitant]
     Active Substance: ACYCLOVIR
     Route: 065
     Dates: start: 20130107, end: 20130113
  9. PERTUZUMAB [Suspect]
     Active Substance: PERTUZUMAB
     Indication: BREAST CANCER
     Dosage: LOADING DOSE AS PER PROTOCOL
     Route: 042
     Dates: start: 20121106
  10. PERTUZUMAB [Suspect]
     Active Substance: PERTUZUMAB
     Dosage: MAINTENANCE DOSE
     Route: 042
     Dates: start: 20121128, end: 20121218
  11. TRASTUZUMAB [Suspect]
     Active Substance: TRASTUZUMAB
     Indication: BREAST CANCER
     Dosage: LOADING DOSE AS PER PROTOCOL
     Route: 042
     Dates: start: 20121106
  12. VINORELBINE [Suspect]
     Active Substance: VINORELBINE\VINORELBINE TARTRATE
     Dosage: INTERRUPTED ON 30/JAN/2013 DUE TO LEUKOPENIA.
     Route: 042
     Dates: start: 20130127, end: 20130130
  13. XYLOMETAZOLINE [Concomitant]
     Active Substance: XYLOMETAZOLINE
     Dosage: PRN
     Route: 065
     Dates: start: 201208
  14. PARACETAMOL [Concomitant]
     Active Substance: ACETAMINOPHEN
     Route: 065
     Dates: start: 20121107, end: 20130502
  15. HCTZ [Concomitant]
     Active Substance: HYDROCHLOROTHIAZIDE
     Route: 065
     Dates: start: 2002
  16. CIPROFLOXACIN. [Concomitant]
     Active Substance: CIPROFLOXACIN
     Route: 065
     Dates: start: 20130122, end: 20130127
  17. METIMAZOL [Concomitant]
     Active Substance: METHIMAZOLE
     Route: 065
     Dates: start: 20121024, end: 20130422
  18. TRASTUZUMAB [Suspect]
     Active Substance: TRASTUZUMAB
     Dosage: MAINTENANCE DOSE
     Route: 042
     Dates: start: 20121128, end: 20121218
  19. TRASTUZUMAB [Suspect]
     Active Substance: TRASTUZUMAB
     Route: 042
     Dates: start: 20130227
  20. VINORELBINE [Suspect]
     Active Substance: VINORELBINE\VINORELBINE TARTRATE
     Indication: BREAST CANCER
     Dosage: LAST DOSE PRIOR TO SAE :12/DEC/2012
     Route: 042
     Dates: start: 20121106, end: 20121218
  21. OMEPRAZOL [Concomitant]
     Active Substance: OMEPRAZOLE
     Route: 065
     Dates: start: 20121217
  22. METOCLOPRAMID [Concomitant]
     Active Substance: METOCLOPRAMIDE
     Route: 065
     Dates: start: 20121212
  23. ACICLOVIR [Concomitant]
     Active Substance: ACYCLOVIR
     Dosage: 1 STRAND PRN
     Route: 065
     Dates: start: 20130107
  24. TRASTUZUMAB [Suspect]
     Active Substance: TRASTUZUMAB
     Route: 042
     Dates: start: 20130109, end: 20130130
  25. IBUPROFEN. [Concomitant]
     Active Substance: IBUPROFEN
  26. PERTUZUMAB [Suspect]
     Active Substance: PERTUZUMAB
     Route: 042
     Dates: start: 20130109, end: 20130130
  27. DEXAMETHASONE. [Concomitant]
     Active Substance: DEXAMETHASONE
     Route: 065
     Dates: start: 20121217
  28. KALINOR [Concomitant]
     Active Substance: POTASSIUM CITRATE
     Route: 065
     Dates: start: 20121205

REACTIONS (2)
  - Leukopenia [Recovered/Resolved]
  - Influenza [Recovered/Resolved]

NARRATIVE: CASE EVENT DATE: 20121215
